FAERS Safety Report 21697715 (Version 1)
Quarter: 2022Q4

REPORT INFORMATION
  Report Type: Spontaneous
  Country: RO (occurrence: RO)
  Receive Date: 20221208
  Receipt Date: 20221208
  Transmission Date: 20230113
  Serious: Yes (Other)
  Sender: FDA-Public Use
  Company Number: RO-CELLTRION INC.-2022RO020618

PATIENT

DRUGS (3)
  1. RITUXIMAB [Suspect]
     Active Substance: RITUXIMAB
     Indication: Dermatomyositis
  2. TACROLIMUS [Concomitant]
     Active Substance: TACROLIMUS
     Indication: Dermatomyositis
  3. NINTEDANIB [Concomitant]
     Active Substance: NINTEDANIB
     Indication: Dermatomyositis
     Dosage: UNK

REACTIONS (3)
  - Dermatomyositis [Unknown]
  - Disease recurrence [Unknown]
  - Off label use [Unknown]
